FAERS Safety Report 7957027-2 (Version None)
Quarter: 2011Q4

REPORT INFORMATION
  Report Type: 
  Country: None (occurrence: None)
  Receive Date: 20111205
  Receipt Date: 20111205
  Transmission Date: 20120403
  Serious: No
  Sender: FDA-Public Use
  Company Number: None

PATIENT
  Age: 84 Year
  Sex: Male
  Weight: 91.172 kg

DRUGS (1)
  1. PRADAXA [Suspect]
     Indication: COAGULOPATHY
     Dosage: 150 MG
     Dates: start: 20111106, end: 20111129

REACTIONS (2)
  - DYSPEPSIA [None]
  - INSOMNIA [None]
